FAERS Safety Report 10729216 (Version 1)
Quarter: 2015Q1

REPORT INFORMATION
  Report Type: Spontaneous
  Country: US (occurrence: None)
  Receive Date: 20150120
  Receipt Date: 20150120
  Transmission Date: 20150721
  Serious: Yes (Life-Threatening, Disabling)
  Sender: FDA-Public Use
  Company Number: None

PATIENT
  Age: 38 Year
  Sex: Male
  Weight: 87.54 kg

DRUGS (2)
  1. LAMOTRIGINE 150 MG GLAXOSMITHKLINE LLC [Suspect]
     Active Substance: LAMOTRIGINE
     Indication: BIPOLAR DISORDER
     Route: 048
  2. DIVALPROEX 500 MG ABBVIE [Suspect]
     Active Substance: DIVALPROEX SODIUM
     Indication: BIPOLAR DISORDER
     Dosage: 1 TABLET
     Route: 048

REACTIONS (3)
  - Suicidal ideation [None]
  - Weight increased [None]
  - Obesity [None]

NARRATIVE: CASE EVENT DATE: 20150116
